FAERS Safety Report 13993318 (Version 1)
Quarter: 2017Q3

REPORT INFORMATION
  Report Type: Spontaneous
  Country: US (occurrence: US)
  Receive Date: 20170920
  Receipt Date: 20170920
  Transmission Date: 20171128
  Serious: Yes (Other)
  Sender: FDA-Public Use
  Company Number: US-BAYER-2017-179017

PATIENT
  Age: 44 Year
  Sex: Female

DRUGS (2)
  1. MIRENA [Suspect]
     Active Substance: LEVONORGESTREL
     Indication: UTERINE POLYP
  2. MIRENA [Suspect]
     Active Substance: LEVONORGESTREL
     Indication: UTERINE HAEMORRHAGE
     Dosage: 20 MCG/24HR, CONT
     Route: 015
     Dates: start: 201704

REACTIONS (11)
  - Weight increased [Not Recovered/Not Resolved]
  - Genital haemorrhage [None]
  - Abdominal distension [None]
  - Off label use [None]
  - Medical device monitoring error [None]
  - Musculoskeletal discomfort [None]
  - Constipation [Recovered/Resolved]
  - Acne [Not Recovered/Not Resolved]
  - Device use issue [None]
  - Fluid retention [None]
  - Back pain [None]

NARRATIVE: CASE EVENT DATE: 201704
